FAERS Safety Report 7469536-3 (Version None)
Quarter: 2011Q2

REPORT INFORMATION
  Report Type: 
  Country: None (occurrence: None)
  Receive Date: 20110510
  Receipt Date: 20110428
  Transmission Date: 20111010
  Serious: Yes (Life-Threatening)
  Sender: FDA-Public Use
  Company Number: PHHY2011JP38427

PATIENT
  Sex: Male

DRUGS (3)
  1. SALAGEN [Suspect]
     Dosage: 5 MG, BID
     Route: 048
     Dates: start: 20070511, end: 20070524
  2. SALAGEN [Suspect]
     Indication: DRY MOUTH
     Dosage: 5 MG, QD
     Route: 048
     Dates: start: 20070420, end: 20070510
  3. SALAGEN [Suspect]
     Dosage: 5 MG, TID
     Route: 048
     Dates: start: 20070525

REACTIONS (2)
  - SINUS TACHYCARDIA [None]
  - VOCAL CORD PARALYSIS [None]
